FAERS Safety Report 16463445 (Version 1)
Quarter: 2019Q2

REPORT INFORMATION
  Report Type: Spontaneous
  Country: JP (occurrence: JP)
  Receive Date: 20190621
  Receipt Date: 20190621
  Transmission Date: 20190711
  Serious: Yes (Other)
  Sender: FDA-Public Use
  Company Number: JP-ELI_LILLY_AND_COMPANY-JP201906010023

PATIENT
  Age: 31 Year
  Sex: Male
  Weight: 51 kg

DRUGS (6)
  1. QUETIAPINE. [Suspect]
     Active Substance: QUETIAPINE
     Indication: INSOMNIA
     Dosage: 100 MG, UNKNOWN
     Route: 048
     Dates: start: 201809
  2. EURODIN [DIHYDROERGOCRISTINE MESILATE] [Concomitant]
  3. LUNESTA [Concomitant]
     Active Substance: ESZOPICLONE
  4. ZYPREXA [Suspect]
     Active Substance: OLANZAPINE
     Dosage: 2.5 MG, DAILY
     Route: 048
     Dates: start: 20181213
  5. NITRAZEPAM [Concomitant]
     Active Substance: NITRAZEPAM
  6. ZYPREXA [Suspect]
     Active Substance: OLANZAPINE
     Indication: INSOMNIA
     Dosage: 5 MG, DAILY
     Route: 048
     Dates: start: 20180921

REACTIONS (3)
  - Sensory disturbance [Not Recovered/Not Resolved]
  - Restless legs syndrome [Unknown]
  - Hallucination, auditory [Not Recovered/Not Resolved]

NARRATIVE: CASE EVENT DATE: 2018
